FAERS Safety Report 17091189 (Version 3)
Quarter: 2021Q1

REPORT INFORMATION
  Report Type: Spontaneous
  Country: US (occurrence: US)
  Receive Date: 20191129
  Receipt Date: 20210226
  Transmission Date: 20210419
  Serious: No
  Sender: FDA-Public Use
  Company Number: US-ROCHE-2477473

PATIENT
  Age: 14 Year
  Sex: Female

DRUGS (2)
  1. XOLAIR [Suspect]
     Active Substance: OMALIZUMAB
     Indication: PRODUCT USED FOR UNKNOWN INDICATION
     Dosage: 25/SEP/2019,11/OCT/2019,25/OCT/2019
     Route: 058
     Dates: start: 20190911
  2. XOLAIR [Suspect]
     Active Substance: OMALIZUMAB
     Dosage: 25/SEP/2019,11/OCT/2019,25/OCT/2019
     Route: 058
     Dates: start: 20190911

REACTIONS (3)
  - Product quality issue [Unknown]
  - Needle issue [Unknown]
  - Pain [Not Recovered/Not Resolved]
